FAERS Safety Report 11072162 (Version 1)
Quarter: 2015Q2

REPORT INFORMATION
  Report Type: Spontaneous
  Country: US (occurrence: None)
  Receive Date: 20150427
  Receipt Date: 20150427
  Transmission Date: 20150821
  Serious: Yes (Hospitalization, Disabling, Other)
  Sender: FDA-Public Use
  Company Number: None

PATIENT
  Age: 16 Year
  Sex: Female
  Weight: 47.17 kg

DRUGS (14)
  1. ACIDOPHILUS [Concomitant]
     Active Substance: LACTOBACILLUS ACIDOPHILUS
  2. VITAMIN D3 [Concomitant]
     Active Substance: CHOLECALCIFEROL
  3. GABAPENTIN. [Concomitant]
     Active Substance: GABAPENTIN
  4. R-LIPOIC ACID [Concomitant]
  5. MAGNESIUM [Concomitant]
     Active Substance: MAGNESIUM
  6. L-GLUTAMINE POWDER [Concomitant]
  7. PROBIOTIC-LACTOBACILUS [Concomitant]
  8. MELOXICAM. [Concomitant]
     Active Substance: MELOXICAM
  9. CIPROFLOXACIN HCL 500 MG BAYER [Suspect]
     Active Substance: CIPROFLOXACIN HYDROCHLORIDE
     Indication: URINARY TRACT INFECTION
     Dosage: 1 PILL TWICE DAILY TAKEN BY MOUTH
     Route: 048
     Dates: start: 20150217, end: 20150225
  10. COQ10 [Concomitant]
     Active Substance: UBIDECARENONE
  11. VITAMIN C [Concomitant]
     Active Substance: ASCORBIC ACID
  12. QUETIAPINE [Concomitant]
     Active Substance: QUETIAPINE
  13. IRON + SUPER B-COMPLEX [Concomitant]
  14. VITAMIN B12 [Concomitant]
     Active Substance: CYANOCOBALAMIN

REACTIONS (45)
  - Hyperaesthesia [None]
  - Abdominal pain [None]
  - Coordination abnormal [None]
  - Abnormal behaviour [None]
  - Weight decreased [None]
  - Pain [None]
  - Anxiety [None]
  - Headache [None]
  - Impaired self-care [None]
  - Chest pain [None]
  - Wheelchair user [None]
  - Malaise [None]
  - Pyrexia [None]
  - Meningitis [None]
  - Neuralgia [None]
  - Mental disorder [None]
  - Paranoia [None]
  - Mood swings [None]
  - Hypoaesthesia [None]
  - Paraesthesia [None]
  - Educational problem [None]
  - Toxicity to various agents [None]
  - Myalgia [None]
  - Feeling cold [None]
  - Dizziness [None]
  - Nightmare [None]
  - Nausea [None]
  - Affective disorder [None]
  - Chest discomfort [None]
  - Arthralgia [None]
  - Asthenia [None]
  - Photophobia [None]
  - Encephalitis [None]
  - Musculoskeletal stiffness [None]
  - Cognitive disorder [None]
  - Hallucination [None]
  - Insomnia [None]
  - Brain neoplasm [None]
  - Muscular weakness [None]
  - Fatigue [None]
  - Back pain [None]
  - Neuropathy peripheral [None]
  - Arthropathy [None]
  - Migraine [None]
  - Disturbance in attention [None]

NARRATIVE: CASE EVENT DATE: 20150222
